FAERS Safety Report 9836771 (Version 3)
Quarter: 2014Q1

REPORT INFORMATION
  Report Type: Spontaneous
  Country: US (occurrence: US)
  Receive Date: 20140123
  Receipt Date: 20140219
  Transmission Date: 20141002
  Serious: No
  Sender: FDA-Public Use
  Company Number: US-PFIZER INC-2014015684

PATIENT
  Age: 54 Year
  Sex: Female
  Weight: 42.63 kg

DRUGS (2)
  1. ALAVERT D-12 HOUR ALLERGY + SINUS [Suspect]
     Indication: SINUS DISORDER
     Dosage: UNK, EVERY 12 HOURLY
     Dates: start: 201401, end: 201401
  2. PAROXETINE [Concomitant]
     Indication: ANXIETY
     Dosage: 20 MG, DAILY

REACTIONS (2)
  - Drug ineffective [Unknown]
  - Product quality issue [Unknown]
